FAERS Safety Report 17437033 (Version 1)
Quarter: 2020Q1

REPORT INFORMATION
  Report Type: Spontaneous
  Country: US (occurrence: US)
  Receive Date: 20200219
  Receipt Date: 20200219
  Transmission Date: 20200409
  Serious: Yes (Hospitalization)
  Sender: FDA-Public Use
  Company Number: US-SPECGX-T202000258

PATIENT
  Age: 46 Year
  Sex: Female

DRUGS (2)
  1. COCAINE [Suspect]
     Active Substance: COCAINE
     Indication: PRODUCT USED FOR UNKNOWN INDICATION
     Dosage: UNK
     Route: 065
  2. METHADONE [Suspect]
     Active Substance: METHADONE HYDROCHLORIDE
     Indication: SUBSTANCE ABUSE
     Dosage: 600 MILLIGRAM, QD
     Route: 065

REACTIONS (8)
  - Torsade de pointes [Recovering/Resolving]
  - Mental disorder [Unknown]
  - Withdrawal syndrome [Unknown]
  - Agitation [Unknown]
  - Electrocardiogram QT prolonged [Unknown]
  - Hypokalaemia [Unknown]
  - Hypertension [Unknown]
  - Hypomagnesaemia [Unknown]
